FAERS Safety Report 7288851-X (Version None)
Quarter: 2011Q1

REPORT INFORMATION
  Report Type: 
  Country: None (occurrence: None)
  Receive Date: 20110211
  Receipt Date: 20110202
  Transmission Date: 20110831
  Serious: Yes (Hospitalization)
  Sender: FDA-Public Use
  Company Number: AT-ASTRAZENECA-2011SE05727

PATIENT
  Age: 22 Year
  Sex: Female
  Weight: 52.9 kg

DRUGS (7)
  1. MIRTABENE [Suspect]
     Dates: start: 20101206, end: 20101208
  2. CONCOR [Concomitant]
     Dates: start: 20101130
  3. TEMESTA [Concomitant]
     Dates: start: 20101128, end: 20101207
  4. SEROQUEL [Suspect]
     Route: 048
     Dates: start: 20101123
  5. LAMICTAL [Concomitant]
  6. VENLAFAXINE HCL [Suspect]
     Dates: start: 20101124
  7. TEMESTA [Concomitant]
     Dates: start: 20101208, end: 20101221

REACTIONS (1)
  - DYSSOMNIA [None]
